FAERS Safety Report 15377165 (Version 1)
Quarter: 2018Q3

REPORT INFORMATION
  Report Type: Spontaneous
  Country: US (occurrence: US)
  Receive Date: 20180913
  Receipt Date: 20180913
  Transmission Date: 20181010
  Serious: Yes (Other)
  Sender: FDA-Public Use
  Company Number: US-TEVA-2018-US-952449

PATIENT
  Sex: Female

DRUGS (1)
  1. CLONAZEPAM. [Suspect]
     Active Substance: CLONAZEPAM
     Indication: ANXIETY
     Dosage: 1.5 MILLIGRAM DAILY;
     Route: 065
     Dates: start: 2017

REACTIONS (2)
  - Drug dependence [Unknown]
  - Memory impairment [Unknown]

NARRATIVE: CASE EVENT DATE: 2017
